FAERS Safety Report 11632038 (Version 1)
Quarter: 2015Q4

REPORT INFORMATION
  Report Type: Report from Study
  Country: CZ (occurrence: CZ)
  Receive Date: 20151015
  Receipt Date: 20151015
  Transmission Date: 20160304
  Serious: Yes (Death, Other)
  Sender: FDA-Public Use
  Company Number: PHHY2015CZ123753

PATIENT
  Sex: Female

DRUGS (1)
  1. SANDOSTATIN LAR DEPOT [Suspect]
     Active Substance: OCTREOTIDE ACETATE
     Indication: NEUROENDOCRINE TUMOUR
     Dosage: 20 OT, UNK
     Route: 065
     Dates: start: 20120620, end: 20121031

REACTIONS (4)
  - Myocardial ischaemia [Fatal]
  - Renal failure [Fatal]
  - Small intestine carcinoma [Fatal]
  - Malignant neoplasm progression [Unknown]
